FAERS Safety Report 17849661 (Version 1)
Quarter: 2020Q2

REPORT INFORMATION
  Report Type: Spontaneous
  Country: US (occurrence: US)
  Receive Date: 20200602
  Receipt Date: 20200602
  Transmission Date: 20200714
  Serious: Yes (Other)
  Sender: FDA-Public Use
  Company Number: US-KYOWAKIRIN-2020BKK008849

PATIENT

DRUGS (1)
  1. NOURIANZ [Suspect]
     Active Substance: ISTRADEFYLLINE
     Indication: PARKINSON^S DISEASE
     Dosage: 20 MG, ONCE DAILY
     Route: 048
     Dates: start: 20200518

REACTIONS (4)
  - Cerebrovascular accident [Unknown]
  - Hypoaesthesia oral [Unknown]
  - Therapy non-responder [Unknown]
  - Tremor [Unknown]

NARRATIVE: CASE EVENT DATE: 202005
